FAERS Safety Report 7593415-4 (Version None)
Quarter: 2011Q3

REPORT INFORMATION
  Report Type: 
  Country: None (occurrence: None)
  Receive Date: 20110706
  Receipt Date: 20110605
  Transmission Date: 20111222
  Serious: Yes (Hospitalization)
  Sender: FDA-Public Use
  Company Number: IR-ELI_LILLY_AND_COMPANY-IR201106008688

PATIENT
  Age: 62 Year
  Sex: Male

DRUGS (1)
  1. PEMETREXED [Suspect]
     Indication: NON-SMALL CELL LUNG CANCER
     Dosage: 500 MG/M2, UNKNOWN
     Route: 065

REACTIONS (3)
  - DERMATITIS [None]
  - MUCOSAL INFLAMMATION [None]
  - HYPERAEMIA [None]
